FAERS Safety Report 15905824 (Version 1)
Quarter: 2019Q1

REPORT INFORMATION
  Report Type: Spontaneous
  Country: US (occurrence: US)
  Receive Date: 20190204
  Receipt Date: 20190204
  Transmission Date: 20190417
  Serious: Yes (Hospitalization)
  Sender: FDA-Public Use
  Company Number: US-SAMSUNG BIOEPIS-SB-2019-01927

PATIENT
  Age: 30 Year
  Sex: Male

DRUGS (3)
  1. INFLIXIMAB [Suspect]
     Active Substance: INFLIXIMAB
     Indication: CROHN^S DISEASE
     Dosage: UNKNOWN
     Route: 065
  2. METHOTREXATE. [Concomitant]
     Active Substance: METHOTREXATE
     Indication: CROHN^S DISEASE
     Dosage: UNKNOWN
     Route: 048
  3. AMPHOTERICIN [Suspect]
     Active Substance: AMPHOTERICIN B
     Indication: HISTOPLASMOSIS
     Dosage: UNKNOWN
     Route: 065

REACTIONS (3)
  - Paradoxical drug reaction [Recovered/Resolved]
  - Histoplasmosis disseminated [Recovered/Resolved]
  - Immune reconstitution inflammatory syndrome [Recovered/Resolved]
